FAERS Safety Report 26082113 (Version 1)
Quarter: 2025Q4

REPORT INFORMATION
  Report Type: Report from Study
  Country: EU (occurrence: EU)
  Receive Date: 20251124
  Receipt Date: 20251124
  Transmission Date: 20260118
  Serious: Yes (Death)
  Sender: PFIZER
  Company Number: EU-PFIZER INC-PV202500137289

PATIENT

DRUGS (8)
  1. METHOTREXATE SODIUM [Suspect]
     Active Substance: METHOTREXATE SODIUM
     Indication: Medulloblastoma
     Dosage: 8000 MG/M2, ON DAY 1, 3 COURSES
  2. VINCRISTINE SULFATE [Suspect]
     Active Substance: VINCRISTINE SULFATE
     Indication: Medulloblastoma
     Dosage: 1.5 MG/M2, ON DAY 1, THREE COURSES
  3. VINCRISTINE SULFATE [Suspect]
     Active Substance: VINCRISTINE SULFATE
     Dosage: 1.5 MG/M2, ON DAY 28, THREE COURSES
  4. CARBOPLATIN [Suspect]
     Active Substance: CARBOPLATIN
     Indication: Medulloblastoma
     Dosage: 1 G/M2, THIRD CYCLE OF HIGH-DOSE CHEMOTHERAPY
  5. ETOPOSIDE [Suspect]
     Active Substance: ETOPOSIDE
     Indication: Medulloblastoma
     Dosage: 2400 MG/M2, ON DAY 8, THREE COURSES
  6. CYCLOPHOSPHAMIDE [Suspect]
     Active Substance: CYCLOPHOSPHAMIDE
     Indication: Medulloblastoma
     Dosage: 4000 MG/M2, ON DAY 28, THREE COURSES
  7. THIOTEPA [Suspect]
     Active Substance: THIOTEPA
     Indication: Medulloblastoma
     Dosage: 900 MG/M2, TWO CYCLES OF HIGH-DOSE CHEMOTHERAPY
  8. THIOTEPA [Suspect]
     Active Substance: THIOTEPA
     Dosage: 750 MG/M2, THIRD CYCLE OF HIGH-DOSE CHEMOTHERAPY

REACTIONS (1)
  - Septic shock [Fatal]
